FAERS Safety Report 25416857 (Version 1)
Quarter: 2025Q2

REPORT INFORMATION
  Report Type: Spontaneous
  Country: US (occurrence: US)
  Receive Date: 20250610
  Receipt Date: 20250610
  Transmission Date: 20250716
  Serious: Yes (Other)
  Sender: MACLEODS
  Company Number: US-MACLEODS PHARMA-MAC2025053410

PATIENT

DRUGS (2)
  1. ZONISAMIDE [Suspect]
     Active Substance: ZONISAMIDE
     Indication: Weight decreased
     Route: 065
  2. PHENTERMINE [Concomitant]
     Active Substance: PHENTERMINE
     Indication: Weight decreased
     Route: 065

REACTIONS (4)
  - Vanishing bile duct syndrome [Recovering/Resolving]
  - Hepatic enzyme increased [Recovering/Resolving]
  - Hepatomegaly [Recovering/Resolving]
  - Cholestasis [Recovered/Resolved]
